FAERS Safety Report 10164586 (Version 1)
Quarter: 2014Q2

REPORT INFORMATION
  Report Type: Spontaneous
  Country: US (occurrence: US)
  Receive Date: 20140510
  Receipt Date: 20140510
  Transmission Date: 20141212
  Serious: No
  Sender: FDA-Public Use
  Company Number: US-BRISTOL-MYERS SQUIBB COMPANY-19582576

PATIENT
  Age: 74 Year
  Sex: Male
  Weight: 115.64 kg

DRUGS (2)
  1. BYDUREON [Suspect]
     Indication: DIABETES MELLITUS
     Dates: start: 20131003
  2. COUMADIN [Suspect]

REACTIONS (2)
  - Prothrombin time shortened [Unknown]
  - Injection site haemorrhage [Unknown]
